FAERS Safety Report 21862174 (Version 1)
Quarter: 2023Q1

REPORT INFORMATION
  Report Type: Report from Study
  Country: US (occurrence: US)
  Receive Date: 20230114
  Receipt Date: 20230114
  Transmission Date: 20230418
  Serious: No
  Sender: FDA-Public Use
  Company Number: US-ABBVIE-4270224

PATIENT
  Sex: Female

DRUGS (1)
  1. VENCLEXTA [Suspect]
     Active Substance: VENETOCLAX
     Indication: Headache
     Dosage: FORM STRENGTH 100 MG, ??TAKE 4 TABLETS BY MOUTH ONCE DAILY ON DAYS 1 THROUGH 7 OF A 28 DAY CYCLE
     Route: 048

REACTIONS (2)
  - Off label use [Not Recovered/Not Resolved]
  - Cytopenia [Not Recovered/Not Resolved]
